FAERS Safety Report 14258478 (Version 1)
Quarter: 2017Q4

REPORT INFORMATION
  Report Type: Spontaneous
  Country: US (occurrence: US)
  Receive Date: 20171207
  Receipt Date: 20171207
  Transmission Date: 20180321
  Serious: No
  Sender: FDA-Public Use
  Company Number: US-PFIZER INC-2017520185

PATIENT
  Sex: Female

DRUGS (1)
  1. LYRICA CR [Suspect]
     Active Substance: PREGABALIN
     Dosage: 1 DF, 1X/DAY (AT NIGHT )

REACTIONS (3)
  - Malaise [Unknown]
  - Dyspnoea [Unknown]
  - Nasopharyngitis [Unknown]
